FAERS Safety Report 17601705 (Version 2)
Quarter: 2020Q2

REPORT INFORMATION
  Report Type: Spontaneous
  Country: HR (occurrence: HR)
  Receive Date: 20200331
  Receipt Date: 20200430
  Transmission Date: 20200713
  Serious: Yes (Death, Hospitalization, Other)
  Sender: FDA-Public Use
  Company Number: HR-GILEAD-2020-0456761

PATIENT
  Age: 67 Year
  Sex: Female
  Weight: 80 kg

DRUGS (12)
  1. PROPRANOLOL [Concomitant]
     Active Substance: PROPRANOLOL HYDROCHLORIDE
  2. FUROSEMIDE. [Concomitant]
     Active Substance: FUROSEMIDE
  3. VITAMIN K [MENADIONE] [Concomitant]
     Active Substance: MENADIONE
  4. PORTALAK [LACTULOSE] [Concomitant]
  5. TOMID [TORASEMIDE] [Concomitant]
  6. TERLIPRESINA [TERLIPRESSIN] [Concomitant]
  7. RIBAVIRIN. [Suspect]
     Active Substance: RIBAVIRIN
     Indication: PRODUCT USED FOR UNKNOWN INDICATION
     Dosage: 400 MG
     Route: 065
     Dates: start: 20200312
  8. HEPA MERZ [Concomitant]
  9. FALACIN [Concomitant]
  10. ALDACTONE [Concomitant]
     Active Substance: SPIRONOLACTONE
  11. LOLA [Concomitant]
  12. EPCLUSA [Suspect]
     Active Substance: SOFOSBUVIR\VELPATASVIR
     Indication: HEPATITIS C
     Dosage: 1 DOSAGE FORM, QD
     Route: 048
     Dates: start: 20200312, end: 20200319

REACTIONS (7)
  - Shock [Fatal]
  - Renal impairment [Fatal]
  - Hypoglycaemia [Fatal]
  - Death [Fatal]
  - Anuria [Fatal]
  - Multiple organ dysfunction syndrome [Fatal]
  - Encephalopathy [Fatal]

NARRATIVE: CASE EVENT DATE: 20200319
